FAERS Safety Report 6155905-0 (Version None)
Quarter: 2009Q2

REPORT INFORMATION
  Report Type: 
  Country: None (occurrence: None)
  Receive Date: 20090413
  Receipt Date: 20081118
  Transmission Date: 20091009
  Serious: Yes (Other)
  Sender: FDA-Public Use
  Company Number: PERC20080115

PATIENT
  Sex: Female

DRUGS (6)
  1. PERCOCET [Suspect]
     Dates: end: 20080301
  2. REBIF [Suspect]
     Indication: MULTIPLE SCLEROSIS
     Dates: start: 20060501, end: 20080301
  3. ALCOHOL [Suspect]
     Dates: end: 20080301
  4. ECSTASY [Suspect]
  5. ABILIFY [Suspect]
     Dates: end: 20080301
  6. TYLENOL [Suspect]
     Indication: BACK PAIN

REACTIONS (7)
  - CHLAMYDIAL INFECTION [None]
  - DRUG EXPOSURE DURING PREGNANCY [None]
  - INDUCED LABOUR [None]
  - INTRA-UTERINE DEATH [None]
  - MATERNAL DRUGS AFFECTING FOETUS [None]
  - UMBILICAL CORD AROUND NECK [None]
  - VAGINAL HAEMORRHAGE [None]
